FAERS Safety Report 11135465 (Version 1)
Quarter: 2015Q2

REPORT INFORMATION
  Report Type: Spontaneous
  Country: US (occurrence: None)
  Receive Date: 20150522
  Receipt Date: 20150522
  Transmission Date: 20150821
  Serious: No
  Sender: FDA-Public Use
  Company Number: None

PATIENT
  Age: 68 Year
  Sex: Female
  Weight: 66.68 kg

DRUGS (12)
  1. SCHIFF MOVE FREE [Concomitant]
     Active Substance: CHONDROITIN SULFATE A\GLUCOSAMINE
  2. WELLBUTRIN SR [Concomitant]
     Active Substance: BUPROPION HYDROCHLORIDE
  3. ACID REDUCER [Concomitant]
     Active Substance: CIMETIDINE\FAMOTIDINE\RANITIDINE HYDROCHLORIDE
  4. BUPROPION SR [Suspect]
     Active Substance: BUPROPION
     Indication: DEPRESSION
     Route: 048
  5. SIMVASTATIN. [Concomitant]
     Active Substance: SIMVASTATIN
  6. NAPROXEN SODIUM. [Concomitant]
     Active Substance: NAPROXEN SODIUM
  7. BUPROPION SR [Suspect]
     Active Substance: BUPROPION
     Indication: ATTENTION DEFICIT/HYPERACTIVITY DISORDER
     Route: 048
  8. ATENOLOL. [Concomitant]
     Active Substance: ATENOLOL
  9. KROGER COMPLETE SENIOR MULTIVITMIN [Concomitant]
  10. VIACTIVE CALCIUM CHEWS-2/KRILL OL [Concomitant]
  11. VITAMIN B12 [Concomitant]
     Active Substance: CYANOCOBALAMIN
  12. B-6 [Concomitant]

REACTIONS (8)
  - Aphasia [None]
  - Social avoidant behaviour [None]
  - Product substitution issue [None]
  - Product quality issue [None]
  - Thinking abnormal [None]
  - Depressive symptom [None]
  - Disturbance in attention [None]
  - Confusional state [None]

NARRATIVE: CASE EVENT DATE: 20150509
